FAERS Safety Report 7229410-4 (Version None)
Quarter: 2011Q1

REPORT INFORMATION
  Report Type: 
  Country: None (occurrence: None)
  Receive Date: 20110117
  Receipt Date: 20110110
  Transmission Date: 20110831
  Serious: Yes (Death)
  Sender: FDA-Public Use
  Company Number: A0906206A

PATIENT
  Age: 84 Year
  Sex: Male

DRUGS (2)
  1. ADVAIR [Suspect]
     Indication: PRODUCT USED FOR UNKNOWN INDICATION
     Route: 055
     Dates: start: 20100729
  2. VENTOLIN HFA [Suspect]
     Dosage: 90MCG UNKNOWN
     Route: 055
     Dates: start: 20100729

REACTIONS (4)
  - CLOSTRIDIAL INFECTION [None]
  - NEOPLASM MALIGNANT [None]
  - RENAL FAILURE [None]
  - DEATH [None]
